FAERS Safety Report 10704987 (Version 1)
Quarter: 2015Q1

REPORT INFORMATION
  Report Type: Spontaneous
  Country: US (occurrence: None)
  Receive Date: 20150109
  Receipt Date: 20150109
  Transmission Date: 20150721
  Serious: Yes (Hospitalization)
  Sender: FDA-Public Use
  Company Number: 201501004

PATIENT
  Age: 47 Year
  Sex: Male

DRUGS (1)
  1. TESTIM [Suspect]
     Active Substance: TESTOSTERONE
     Indication: BLOOD TESTOSTERONE DECREASED
     Route: 062
     Dates: start: 200802, end: 200804

REACTIONS (3)
  - Brain stem haemorrhage [None]
  - Haemorrhagic stroke [None]
  - Deep vein thrombosis [None]

NARRATIVE: CASE EVENT DATE: 20091127
